FAERS Safety Report 24060846 (Version 1)
Quarter: 2024Q3

REPORT INFORMATION
  Report Type: Spontaneous
  Country: US (occurrence: US)
  Receive Date: 20240708
  Receipt Date: 20240708
  Transmission Date: 20241016
  Serious: Yes (Hospitalization)
  Sender: ARGENX BVBA
  Company Number: US-ARGENX-2024-ARGX-US005080

PATIENT

DRUGS (1)
  1. VYVGART [Suspect]
     Active Substance: EFGARTIGIMOD ALFA-FCAB
     Indication: Myasthenia gravis
     Dosage: UNK,SOL 400MG 20ML SDV
     Route: 065

REACTIONS (8)
  - Asthenopia [Unknown]
  - Eyelid ptosis [Unknown]
  - Blood pressure abnormal [Unknown]
  - Bacterial infection [Unknown]
  - Depression [Unknown]
  - Fall [Unknown]
  - Psychiatric symptom [Unknown]
  - Skin laceration [Recovering/Resolving]
